FAERS Safety Report 8517309-2 (Version None)
Quarter: 2012Q3

REPORT INFORMATION
  Report Type: 
  Country: None (occurrence: None)
  Receive Date: 20120718
  Receipt Date: 20120709
  Transmission Date: 20120928
  Serious: Yes (Hospitalization, Other)
  Sender: FDA-Public Use
  Company Number: FR-ASTRAZENECA-2012SE47393

PATIENT
  Age: 24616 Day
  Sex: Female

DRUGS (5)
  1. QUETIAPINE FUMARATE [Suspect]
     Route: 048
     Dates: start: 20111129
  2. IMOVANE [Suspect]
     Route: 048
     Dates: start: 20111124
  3. OXAZEPAM [Suspect]
     Route: 048
     Dates: start: 20110128
  4. ANAFRANIL [Suspect]
     Route: 048
     Dates: start: 20110325
  5. ATORVASTATIN [Suspect]
     Route: 048
     Dates: start: 20101215

REACTIONS (4)
  - CONFUSIONAL STATE [None]
  - HYPONATRAEMIA [None]
  - URINARY RETENTION [None]
  - AGITATION [None]
